FAERS Safety Report 5611390-6 (Version None)
Quarter: 2008Q1

REPORT INFORMATION
  Report Type: 
  Country: None (occurrence: None)
  Receive Date: 20080201
  Receipt Date: 20080121
  Transmission Date: 20080703
  Serious: Yes (Hospitalization)
  Sender: FDA-Public Use
  Company Number: FR-PFIZER INC-2008006947

PATIENT
  Age: 41 Year
  Sex: Female

DRUGS (4)
  1. FELDENE [Suspect]
     Indication: BACK PAIN
     Dosage: TEXT:20 MG/ML
     Route: 030
     Dates: start: 20070809, end: 20070816
  2. KETOPROFEN [Suspect]
     Indication: SCIATICA
     Route: 048
     Dates: start: 20070803, end: 20070808
  3. MOPRAL [Suspect]
     Route: 048
  4. VOLTAREN [Suspect]
     Indication: BACK PAIN
     Dosage: TEXT:75MG/ 3ML
     Route: 030
     Dates: start: 20070808, end: 20070808

REACTIONS (6)
  - HEPATIC FUNCTION ABNORMAL [None]
  - HEPATITIS CHOLESTATIC [None]
  - PANCREATIC ENZYMES INCREASED [None]
  - PELVIC FLUID COLLECTION [None]
  - PLEURAL EFFUSION [None]
  - PYREXIA [None]
